FAERS Safety Report 5637766-9 (Version None)
Quarter: 2008Q1

REPORT INFORMATION
  Report Type: 
  Country: None (occurrence: None)
  Receive Date: 20080219
  Receipt Date: 20080131
  Transmission Date: 20080703
  Serious: Yes (Disabling, Other)
  Sender: FDA-Public Use
  Company Number: TRP_00975_2007

PATIENT
  Sex: Female
  Weight: 63 kg

DRUGS (4)
  1. RIBASPHERE [Suspect]
     Indication: HEPATITIS C VIRUS
     Dosage: 1000 MG ORAL
     Route: 048
     Dates: start: 20060901, end: 20070727
  2. PEGASYS [Suspect]
     Indication: HEPATITIS C VIRUS
     Dosage: 180 UG SUBCUTANEOUS
     Route: 058
     Dates: start: 20060901, end: 20070727
  3. LEVOTHYROXINE SODIUM [Concomitant]
  4. TEMAZEPAM [Concomitant]

REACTIONS (25)
  - ABDOMINAL DISCOMFORT [None]
  - ALOPECIA [None]
  - ANGER [None]
  - ANOREXIA [None]
  - ANXIETY [None]
  - CHEST DISCOMFORT [None]
  - DEPRESSION [None]
  - DRUG DEPENDENCE [None]
  - EYE INFECTION [None]
  - FATIGUE [None]
  - HALLUCINATION, AUDITORY [None]
  - IMPAIRED DRIVING ABILITY [None]
  - INJECTION SITE HAEMORRHAGE [None]
  - INSOMNIA [None]
  - LOCALISED INFECTION [None]
  - NASAL ULCER [None]
  - NEUTROPENIA [None]
  - PLATELET COUNT DECREASED [None]
  - PURULENT DISCHARGE [None]
  - SCREAMING [None]
  - SKIN ULCER [None]
  - VAGINAL DISCHARGE [None]
  - VULVOVAGINAL DISCOMFORT [None]
  - WEIGHT DECREASED [None]
  - WHITE BLOOD CELL COUNT DECREASED [None]
